FAERS Safety Report 4648854-8 (Version None)
Quarter: 2005Q2

REPORT INFORMATION
  Report Type: 
  Country: None (occurrence: None)
  Receive Date: 20050427
  Receipt Date: 20050415
  Transmission Date: 20051028
  Serious: Yes (Hospitalization)
  Sender: FDA-Public Use
  Company Number: 2000031190US

PATIENT
  Age: 52 Year
  Sex: Female
  Weight: 58.9676 kg

DRUGS (6)
  1. ROGAINE [Suspect]
     Indication: ALOPECIA
     Dosage: 1 ML BID, TOPICAL
     Route: 061
     Dates: start: 20000927, end: 20000929
  2. ESTRADIOL [Concomitant]
  3. MEDROXYPROGESTERONE [Concomitant]
  4. TRETINOIN [Concomitant]
  5. MEDROXYPROGESTERONE ACETATE [Concomitant]
  6. PROVELLA-14 (ESTROGENS CONJUGATED, MEDROXYPROGESTERONE ACETATE) [Concomitant]

REACTIONS (17)
  - ANXIETY [None]
  - BREAST DISORDER [None]
  - DEHYDRATION [None]
  - DRY SKIN [None]
  - DYSPEPSIA [None]
  - DYSPNOEA [None]
  - HYPOTENSION [None]
  - MAMMOGRAM ABNORMAL [None]
  - MITRAL VALVE INCOMPETENCE [None]
  - MYOCARDIAL INFARCTION [None]
  - RESPIRATORY RATE INCREASED [None]
  - SINUS BRADYCARDIA [None]
  - SKIN WARM [None]
  - SUPRAVENTRICULAR TACHYCARDIA [None]
  - THERAPY NON-RESPONDER [None]
  - THIRST [None]
  - TRICUSPID VALVE INCOMPETENCE [None]
